FAERS Safety Report 4619421-7 (Version None)
Quarter: 2005Q2

REPORT INFORMATION
  Report Type: 
  Country: None (occurrence: None)
  Receive Date: 20050325
  Receipt Date: 20020603
  Transmission Date: 20051028
  Serious: Yes (Hospitalization)
  Sender: FDA-Public Use
  Company Number: 64886-2002-003

PATIENT
  Age: 79 Year
  Sex: Female

DRUGS (6)
  1. FLUOROURACIL [Suspect]
     Dosage: 400 MG/M2, IV
     Route: 042
     Dates: start: 20020506, end: 20020510
  2. LEUCOVORIN CALCIUM [Suspect]
     Dosage: 25 MG/M2, IV
     Route: 042
     Dates: start: 20020506, end: 20020510
  3. ZOCOR [Concomitant]
  4. GLUCOTROL [Concomitant]
  5. NORVASC [Concomitant]
  6. TOPROL-XL [Concomitant]

REACTIONS (2)
  - DIARRHOEA [None]
  - OESOPHAGITIS [None]
